FAERS Safety Report 16925583 (Version 1)
Quarter: 2019Q4

REPORT INFORMATION
  Report Type: Spontaneous
  Country: US (occurrence: US)
  Receive Date: 20190823
  Receipt Date: 20190823
  Transmission Date: 20200122
  Serious: No
  Sender: FDA-Public Use
  Company Number: None

PATIENT
  Sex: Female

DRUGS (1)
  1. TASIGNA [Suspect]
     Active Substance: NILOTINIB
     Indication: BRONCHITIS
     Route: 048
     Dates: start: 201710

REACTIONS (4)
  - Gait disturbance [None]
  - Chest pain [None]
  - Therapy cessation [None]
  - Hypoaesthesia [None]
